FAERS Safety Report 9440713 (Version 1)
Quarter: 2013Q3

REPORT INFORMATION
  Report Type: Spontaneous
  Country: FR (occurrence: FR)
  Receive Date: 20130805
  Receipt Date: 20130805
  Transmission Date: 20140515
  Serious: Yes (Life-Threatening, Hospitalization, Other)
  Sender: FDA-Public Use
  Company Number: FR-ASTRAZENECA-2013SE60330

PATIENT
  Age: 28646 Day
  Sex: Male

DRUGS (18)
  1. INEXIUM [Suspect]
     Indication: PROPHYLAXIS
     Route: 042
     Dates: start: 20130711, end: 20130718
  2. AXEPIM [Suspect]
     Indication: PNEUMONIA ASPIRATION
     Route: 042
     Dates: start: 20130716, end: 20130718
  3. SPIRIVA [Concomitant]
  4. SERETIDE [Concomitant]
  5. GLICLAZIDE [Concomitant]
     Route: 048
     Dates: end: 20130715
  6. METFORMINE [Concomitant]
     Route: 048
     Dates: end: 20130715
  7. VASTAREL [Concomitant]
  8. COTAREG [Concomitant]
  9. LERCAN [Concomitant]
  10. MIDAZOLAM PANPHARMA [Concomitant]
     Dates: start: 20130715, end: 20130720
  11. SUFENTA [Concomitant]
     Dates: start: 20130715, end: 20130720
  12. NORADRENALINE [Concomitant]
     Dates: start: 20130715, end: 20130723
  13. ADRENALINE [Concomitant]
     Dates: start: 20130715
  14. INSULIN [Concomitant]
     Dates: start: 201307
  15. UNFRACTIONATED HEPARIN [Concomitant]
     Dates: start: 201307
  16. ACTILYSE [Concomitant]
     Indication: FIBRINOLYSIS
     Dates: start: 20130716, end: 20130716
  17. ZYVOXID [Concomitant]
     Dates: start: 20130716, end: 20130722
  18. AMIKLIN [Concomitant]
     Dosage: ONCE/SINGLE ADMINISTRATION
     Dates: start: 20130716, end: 20130716

REACTIONS (5)
  - Organ failure [Unknown]
  - Cardio-respiratory arrest [Unknown]
  - Pulmonary embolism [Unknown]
  - Pneumonia aspiration [Unknown]
  - Thrombocytopenia [Recovering/Resolving]
